FAERS Safety Report 20783607 (Version 3)
Quarter: 2022Q3

REPORT INFORMATION
  Report Type: Report from Study
  Country: US (occurrence: US)
  Receive Date: 20220504
  Receipt Date: 20220711
  Transmission Date: 20221026
  Serious: No
  Sender: FDA-Public Use
  Company Number: US-NOVARTISTESTPH-NVSC2022US101720

PATIENT
  Sex: Male
  Weight: 90.72 kg

DRUGS (1)
  1. COSENTYX [Suspect]
     Active Substance: SECUKINUMAB
     Indication: Psoriasis
     Dosage: 150 MG (ONCE WEEKLY FOR 5 WEEKS)
     Route: 058
     Dates: start: 20220427

REACTIONS (3)
  - Abdominal discomfort [Recovered/Resolved]
  - Rash [Unknown]
  - Dry skin [Unknown]
